FAERS Safety Report 19679501 (Version 3)
Quarter: 2021Q3

REPORT INFORMATION
  Report Type: Spontaneous
  Country: US (occurrence: US)
  Receive Date: 20210809
  Receipt Date: 20210820
  Transmission Date: 20211014
  Serious: Yes (Hospitalization)
  Sender: FDA-Public Use
  Company Number: US-FRESENIUS MEDICAL CARE RENAL THERAPIES GROUP-FMC-2108-001241

PATIENT
  Age: 32 Year
  Sex: Male
  Weight: 62.5 kg

DRUGS (1)
  1. DELFLEX WITH DEXTROSE 1.5% LOW MAGNESIUM LOW CALCIUM [Suspect]
     Active Substance: CALCIUM CHLORIDE\DEXTROSE\MAGNESIUM CHLORIDE\SODIUM CHLORIDE\SODIUM LACTATE
     Indication: END STAGE RENAL DISEASE
     Dosage: AT 2500 ML FOR 6 CYCLES WITH A LAST FILL OF 2000 ML AND NO DAYTIME EXCHANGE, FOR APPROXIMATELY 5 YEA
     Route: 033

REACTIONS (3)
  - Respiratory failure [Unknown]
  - Mental status changes [Unknown]
  - Pneumonia [Unknown]
